FAERS Safety Report 9337694 (Version 1)
Quarter: 2013Q2

REPORT INFORMATION
  Report Type: Spontaneous
  Country: FR (occurrence: FR)
  Receive Date: 20130607
  Receipt Date: 20130607
  Transmission Date: 20140414
  Serious: Yes (Hospitalization)
  Sender: FDA-Public Use
  Company Number: FR-ASTRAZENECA-2013SE38439

PATIENT
  Age: 72 Year
  Sex: Female

DRUGS (8)
  1. ZESTORETIC [Suspect]
     Indication: HYPERTENSION
     Dosage: LONG LASTING TREATMENT
     Route: 048
  2. TAXOTERE [Suspect]
     Indication: BREAST CANCER FEMALE
     Route: 065
     Dates: start: 20090717
  3. TAXOTERE [Suspect]
     Indication: BREAST CANCER FEMALE
     Route: 065
     Dates: start: 2009
  4. NOVONORM [Concomitant]
  5. METFORMINE [Concomitant]
  6. AMLOR [Concomitant]
  7. SOPROL [Concomitant]
  8. KARDEGIC [Concomitant]

REACTIONS (3)
  - Palmar-plantar erythrodysaesthesia syndrome [Recovered/Resolved]
  - Lacrimation increased [Recovered/Resolved]
  - Neutropenia [Recovered/Resolved]
